FAERS Safety Report 18318684 (Version 4)
Quarter: 2021Q1

REPORT INFORMATION
  Report Type: Spontaneous
  Country: US (occurrence: US)
  Receive Date: 20200928
  Receipt Date: 20210329
  Transmission Date: 20210419
  Serious: No
  Sender: FDA-Public Use
  Company Number: US-JNJFOC-20200942333

PATIENT
  Age: 70 Year
  Sex: Female

DRUGS (3)
  1. INVOKANA [Suspect]
     Active Substance: CANAGLIFLOZIN
     Indication: DIABETES MELLITUS
     Dosage: REFILLS ON APR?2021
     Route: 048
     Dates: start: 202001
  2. INSULIN [Concomitant]
     Active Substance: INSULIN NOS
     Indication: DIABETES MELLITUS
     Route: 065
  3. METFORMIN [Concomitant]
     Active Substance: METFORMIN HYDROCHLORIDE
     Indication: DIABETES MELLITUS

REACTIONS (4)
  - Discomfort [Unknown]
  - Urinary tract infection [Recovering/Resolving]
  - Impaired work ability [Unknown]
  - Adverse reaction [Recovering/Resolving]

NARRATIVE: CASE EVENT DATE: 2020
